FAERS Safety Report 20727124 (Version 1)
Quarter: 2022Q2

REPORT INFORMATION
  Report Type: Spontaneous
  Country: US (occurrence: US)
  Receive Date: 20220419
  Receipt Date: 20220419
  Transmission Date: 20220721
  Serious: Yes (Hospitalization)
  Sender: FDA-Public Use
  Company Number: US-AMERICAN REGENT INC-2022001042

PATIENT
  Age: 46 Year
  Sex: Female
  Weight: 86 kg

DRUGS (1)
  1. INJECTAFER [Suspect]
     Active Substance: FERRIC CARBOXYMALTOSE
     Indication: Product used for unknown indication
     Dosage: 750 MILLIGRAM, SINGLE
     Route: 042
     Dates: start: 20220223, end: 20220223

REACTIONS (4)
  - Cardio-respiratory arrest [Recovered/Resolved]
  - Respiratory distress [Unknown]
  - Dysphoria [Unknown]
  - Headache [Unknown]

NARRATIVE: CASE EVENT DATE: 20220223
